FAERS Safety Report 5414028-6 (Version None)
Quarter: 2007Q3

REPORT INFORMATION
  Report Type: 
  Country: None (occurrence: None)
  Receive Date: 20070814
  Receipt Date: 20070801
  Transmission Date: 20080115
  Serious: Yes (Hospitalization, Other)
  Sender: FDA-Public Use
  Company Number: US-ELI_LILLY_AND_COMPANY-US200707001876

PATIENT
  Age: 58 Year
  Sex: Female
  Weight: 72.562 kg

DRUGS (20)
  1. BYETTA [Suspect]
     Indication: TYPE 2 DIABETES MELLITUS
     Dosage: 5 UG, 2/D
     Route: 058
     Dates: start: 20070501, end: 20070629
  2. BYETTA [Suspect]
     Dosage: 5 UG, 2/D
     Route: 058
     Dates: start: 20070704
  3. AMARYL [Concomitant]
     Dosage: 4 MG, DAILY (1/D)
     Route: 048
  4. AMARYL [Concomitant]
     Dosage: 2 MG, DAILY (1/D)
     Route: 048
     Dates: end: 20070601
  5. COUMADIN [Concomitant]
     Dosage: 3.75 MG, DAILY (1/D)
     Route: 048
  6. LEVOXYL [Concomitant]
     Indication: THYROID THERAPY
     Dosage: 0.125 MG, DAILY (1/D)
     Route: 048
     Dates: start: 20070703
  7. LEVOXYL [Concomitant]
     Dosage: UNK MG, DAILY (1/D)
     Route: 048
     Dates: end: 20070702
  8. LIPITOR [Concomitant]
     Dosage: UNK MG, DAILY (1/D)
     Route: 048
     Dates: start: 20040101, end: 20070702
  9. LIPITOR [Concomitant]
     Dosage: 40 MG, DAILY (1/D)
     Route: 048
     Dates: start: 20070703
  10. ZOLOFT [Concomitant]
     Indication: DEPRESSION
     Dosage: 100 MG, DAILY (1/D)
     Route: 048
     Dates: start: 20030101
  11. SPIRIVA [Concomitant]
     Indication: PULMONARY FIBROSIS
     Dosage: 18 UG, DAILY (1/D)
     Route: 055
     Dates: start: 20070101
  12. PREVACID [Concomitant]
     Indication: GASTROOESOPHAGEAL REFLUX DISEASE
     Dosage: 30 MG, DAILY (1/D)
     Route: 048
     Dates: start: 20010101
  13. DIOVAN /SCH/ [Concomitant]
     Dosage: 80 MG, DAILY (1/D)
     Route: 048
     Dates: start: 20010101
  14. K-DUR 10 [Concomitant]
     Indication: ELECTROLYTE SUBSTITUTION THERAPY
     Dosage: 20 MEQ, DAILY (1/D)
     Route: 048
  15. TRICOR [Concomitant]
     Indication: HYPERTRIGLYCERIDAEMIA
     Dosage: 145 MG, DAILY (1/D)
     Route: 048
     Dates: start: 20060701
  16. LASIX [Concomitant]
     Dosage: 40 MG, DAILY (1/D)
     Route: 048
     Dates: end: 20070629
  17. LASIX [Concomitant]
     Dosage: 20 MG, DAILY (1/D)
     Route: 048
     Dates: start: 20070703
  18. DIGOXIN [Concomitant]
     Indication: CARDIAC FAILURE CONGESTIVE
     Dosage: 0.125 MG, DAILY (1/D)
     Route: 048
  19. NITROGLYCERIN [Concomitant]
     Indication: CHEST PAIN
     Dosage: UNK, AS NEEDED
     Route: 060
  20. FLECAINIDE ACETATE [Concomitant]
     Indication: ATRIAL FIBRILLATION
     Dates: start: 20010101, end: 20070629

REACTIONS (11)
  - ATRIAL FIBRILLATION [None]
  - BLOOD GLUCOSE DECREASED [None]
  - BLOOD GLUCOSE INCREASED [None]
  - BRONCHITIS [None]
  - HYPERHIDROSIS [None]
  - LETHARGY [None]
  - LOSS OF CONSCIOUSNESS [None]
  - MALAISE [None]
  - NERVOUSNESS [None]
  - PNEUMONIA [None]
  - VOMITING [None]
